FAERS Safety Report 9292184 (Version 1)
Quarter: 2013Q2

REPORT INFORMATION
  Report Type: Report from Study
  Country: CA (occurrence: CA)
  Receive Date: 20130516
  Receipt Date: 20130516
  Transmission Date: 20140414
  Serious: Yes (Hospitalization)
  Sender: FDA-Public Use
  Company Number: CA-JNJFOC-20130506308

PATIENT
  Age: 37 Year
  Sex: Female
  Weight: 67.5 kg

DRUGS (8)
  1. REMICADE [Suspect]
     Indication: COLITIS ULCERATIVE
     Route: 042
     Dates: start: 20121112
  2. REMICADE [Suspect]
     Indication: COLITIS ULCERATIVE
     Route: 042
  3. ENTOCORT [Concomitant]
     Route: 048
  4. CALCIUM W/VITAMIN D NOS [Concomitant]
     Dosage: 500 MG + 400 U
     Route: 048
  5. FER [Concomitant]
     Route: 048
  6. URSODIOL [Concomitant]
     Route: 048
  7. CIPRO [Concomitant]
     Route: 048
     Dates: start: 20130201, end: 20130210
  8. IMURAN [Concomitant]
     Route: 048
     Dates: start: 20130201

REACTIONS (6)
  - Cholangitis sclerosing [Unknown]
  - Abdominal pain [Recovering/Resolving]
  - Diarrhoea haemorrhagic [Recovering/Resolving]
  - Abdominal distension [Unknown]
  - Nausea [Unknown]
  - Weight increased [Unknown]
